FAERS Safety Report 21911022 (Version 2)
Quarter: 2025Q2

REPORT INFORMATION
  Report Type: Report from Study
  Country: US (occurrence: US)
  Receive Date: 20230125
  Receipt Date: 20250630
  Transmission Date: 20250717
  Serious: Yes (Other)
  Sender: TAKEDA
  Company Number: US-TAKEDA-ALL1-2013-05410

PATIENT
  Sex: Female

DRUGS (3)
  1. VELAGLUCERASE ALFA [Suspect]
     Active Substance: VELAGLUCERASE ALFA
     Indication: Gaucher^s disease
  2. VELAGLUCERASE ALFA [Suspect]
     Active Substance: VELAGLUCERASE ALFA
  3. VELAGLUCERASE ALFA [Suspect]
     Active Substance: VELAGLUCERASE ALFA

REACTIONS (2)
  - Exposure during pregnancy [Not Recovered/Not Resolved]
  - Exposure to SARS-CoV-2 [Recovering/Resolving]

NARRATIVE: CASE EVENT DATE: 20130101
